FAERS Safety Report 5610440-0 (Version None)
Quarter: 2008Q1

REPORT INFORMATION
  Report Type: 
  Country: None (occurrence: None)
  Receive Date: 20080128
  Receipt Date: 20080104
  Transmission Date: 20080703
  Serious: Yes (Hospitalization)
  Sender: FDA-Public Use
  Company Number: 20084693

PATIENT
  Sex: Male

DRUGS (1)
  1. LIORESAL [Suspect]
     Indication: MUSCLE SPASTICITY
     Dosage: 475 MCG, DAILY, INTRATHECAL
     Route: 037

REACTIONS (7)
  - ABNORMAL BEHAVIOUR [None]
  - ASTHENIA [None]
  - CATHETER RELATED COMPLICATION [None]
  - CYSTITIS [None]
  - FATIGUE [None]
  - OVERDOSE [None]
  - PNEUMONIA ASPIRATION [None]
